FAERS Safety Report 7100108-6 (Version None)
Quarter: 2010Q4

REPORT INFORMATION
  Report Type: 
  Country: None (occurrence: None)
  Receive Date: 20101112
  Receipt Date: 20100106
  Transmission Date: 20110411
  Serious: No
  Sender: FDA-Public Use
  Company Number: A0838042A

PATIENT
  Age: 94 Year
  Sex: Female

DRUGS (5)
  1. COREG [Suspect]
     Dosage: 6.25MG TWICE PER DAY
     Route: 048
     Dates: start: 20091104
  2. VALIUM [Concomitant]
  3. LOMOTIL [Concomitant]
  4. ZANTAC [Concomitant]
  5. VITAMINS [Concomitant]

REACTIONS (4)
  - FEELING ABNORMAL [None]
  - SENSORY DISTURBANCE [None]
  - SKIN DISCOLOURATION [None]
  - VASODILATATION [None]
